FAERS Safety Report 5253514-9 (Version None)
Quarter: 2007Q1

REPORT INFORMATION
  Report Type: 
  Country: None (occurrence: None)
  Receive Date: 20070220
  Receipt Date: 20070205
  Transmission Date: 20070707
  Serious: No
  Sender: FDA-Public Use
  Company Number: B0458124A

PATIENT
  Age: 15 Year
  Sex: Female

DRUGS (4)
  1. ZINACEF [Suspect]
     Indication: PROPHYLAXIS
     Dosage: INTRAVENOUS
     Route: 042
  2. CO-TRIMOXAZOLE (FORMULATION UNKNOWN) (SULFAMETHOXAZOLE/TRIMETHO) [Suspect]
  3. IBUPROFEN [Suspect]
     Indication: ANALGESIC EFFECT
  4. CIPROFLOXACIN [Suspect]

REACTIONS (5)
  - HAEMODIALYSIS [None]
  - NAUSEA [None]
  - NEPHRITIS INTERSTITIAL [None]
  - RENAL FAILURE ACUTE [None]
  - VOMITING [None]
